FAERS Safety Report 5586678-8 (Version None)
Quarter: 2008Q1

REPORT INFORMATION
  Report Type: 
  Country: None (occurrence: None)
  Receive Date: 20080110
  Receipt Date: 20071009
  Transmission Date: 20080703
  Serious: No
  Sender: FDA-Public Use
  Company Number: US-BAYER-US-2007-038508

PATIENT
  Age: 22 Year
  Sex: Female

DRUGS (2)
  1. YAZ [Suspect]
     Indication: ORAL CONTRACEPTION
     Route: 048
     Dates: start: 20070601
  2. BIAXIN [Concomitant]
     Indication: SINUSITIS
     Dates: start: 20070901

REACTIONS (2)
  - MENSTRUATION DELAYED [None]
  - SINUSITIS [None]
